FAERS Safety Report 10222656 (Version 2)
Quarter: 2014Q2

REPORT INFORMATION
  Report Type: Report from Study
  Country: DE (occurrence: DE)
  Receive Date: 20140606
  Receipt Date: 20140606
  Transmission Date: 20141212
  Serious: Yes (Hospitalization, Other)
  Sender: FDA-Public Use
  Company Number: DE-ABBVIE-14P-062-1230496-00

PATIENT
  Age: 69 Year
  Sex: Female
  Weight: 47 kg

DRUGS (1)
  1. HUMIRA [Suspect]
     Indication: CROHN^S DISEASE
     Route: 058
     Dates: start: 20110524

REACTIONS (3)
  - Cystitis noninfective [Recovered/Resolved with Sequelae]
  - Transurethral bladder resection [Unknown]
  - Basal cell carcinoma [Recovered/Resolved]
